FAERS Safety Report 7297407-4 (Version None)
Quarter: 2011Q1

REPORT INFORMATION
  Report Type: 
  Country: None (occurrence: None)
  Receive Date: 20110216
  Receipt Date: 20110203
  Transmission Date: 20110831
  Serious: Yes (Hospitalization, Other)
  Sender: FDA-Public Use
  Company Number: US-ELI_LILLY_AND_COMPANY-US201102001501

PATIENT
  Sex: Female

DRUGS (9)
  1. PREVACID [Concomitant]
  2. CYMBALTA [Suspect]
     Dosage: 60 MG, DAILY (1/D)
  3. MORPHINE [Concomitant]
  4. ATROVENT [Concomitant]
  5. MUCOMYST [Concomitant]
  6. MULTI-VITAMIN [Concomitant]
  7. FENTANYL [Concomitant]
  8. ALBUTEROL [Concomitant]
  9. LEVOTHYROXINE SODIUM [Concomitant]

REACTIONS (3)
  - RESPIRATORY FAILURE [None]
  - HOSPITALISATION [None]
  - GASTROINTESTINAL TUBE INSERTION [None]
